FAERS Safety Report 23492578 (Version 1)
Quarter: 2024Q1

REPORT INFORMATION
  Report Type: Spontaneous
  Country: GB (occurrence: GB)
  Receive Date: 20240207
  Receipt Date: 20240207
  Transmission Date: 20240409
  Serious: No
  Sender: FDA-Public Use
  Company Number: None

PATIENT
  Age: 59 Year
  Sex: Female
  Weight: 104 kg

DRUGS (7)
  1. EZETIMIBE [Suspect]
     Active Substance: EZETIMIBE
     Indication: Product used for unknown indication
     Dosage: 10 MILLIGRAM, QD (TABLET)
     Route: 065
     Dates: start: 20230929
  2. DAPAGLIFLOZIN [Concomitant]
     Active Substance: DAPAGLIFLOZIN
     Indication: Ill-defined disorder
     Dosage: UNK, OD (TAKE ONE TABLET ONCE A DAY)
     Route: 065
     Dates: start: 20230920
  3. FENBID [Concomitant]
     Indication: Ill-defined disorder
     Dosage: UNK, TID (APPLY 3 TIMES/DAY)
     Route: 065
     Dates: start: 20230328
  4. LANSOPRAZOLE [Concomitant]
     Active Substance: LANSOPRAZOLE
     Indication: Ill-defined disorder
     Dosage: UNK, PRN  (TAKE ONE ONCE DAILY, AS REQUIRED WHEN USING NAP)
     Route: 065
     Dates: start: 20230131
  5. METFORMIN [Concomitant]
     Active Substance: METFORMIN HYDROCHLORIDE
     Indication: Ill-defined disorder
     Dosage: UNK, QD  (TAKE 2 WITH BREAKFAST AND 2 WITH EVENING MEAL)
     Route: 065
     Dates: start: 20220920
  6. NAPROXEN [Concomitant]
     Active Substance: NAPROXEN
     Indication: Ill-defined disorder
     Dosage: UNK, PRN (TAKE ONE TWICE DAILY, AS REQUIRED FOR FLARE OF
     Route: 065
     Dates: start: 20230131
  7. TRULICITY [Concomitant]
     Active Substance: DULAGLUTIDE
     Indication: Ill-defined disorder
     Dosage: 1.5 MILLIGRAM, ONCE WEEKLY (1.5MG SC INJECTION ONCE WEEKLY)
     Route: 058
     Dates: start: 20230131

REACTIONS (1)
  - Abnormal weight gain [Unknown]
